FAERS Safety Report 6328917-1 (Version None)
Quarter: 2009Q3

REPORT INFORMATION
  Report Type: 
  Country: None (occurrence: None)
  Receive Date: 20090826
  Receipt Date: 20090817
  Transmission Date: 20100115
  Serious: Yes (Hospitalization)
  Sender: FDA-Public Use
  Company Number: JP-JNJFOC-20090806665

PATIENT
  Age: 76 Year
  Sex: Female

DRUGS (12)
  1. LEVOFLOXACIN [Suspect]
     Indication: DRUG USE FOR UNKNOWN INDICATION
     Route: 048
  2. AVELOX [Suspect]
     Indication: DRUG USE FOR UNKNOWN INDICATION
     Route: 065
  3. MUCOSOLVAN [Concomitant]
     Route: 065
  4. HOKUNALIN [Concomitant]
     Route: 065
  5. SELBEX [Concomitant]
     Route: 065
  6. HUSTARGIN [Concomitant]
     Route: 065
  7. PEON [Concomitant]
     Route: 065
  8. ARICEPT [Concomitant]
     Route: 065
  9. AMLODIN [Concomitant]
     Route: 065
  10. ACTOS [Concomitant]
     Route: 065
  11. ASPIRIN [Concomitant]
     Route: 065
  12. OPALMON [Concomitant]
     Route: 065

REACTIONS (4)
  - DYSPNOEA [None]
  - PNEUMONIA ASPIRATION [None]
  - URTICARIA [None]
  - WHEEZING [None]
